FAERS Safety Report 10035026 (Version 1)
Quarter: 2014Q1

REPORT INFORMATION
  Report Type: Spontaneous
  Country: US (occurrence: None)
  Receive Date: 20140306
  Receipt Date: 20140306
  Transmission Date: 20141002
  Serious: Yes (Hospitalization)
  Sender: FDA-Public Use
  Company Number: 163-21880-13011832

PATIENT
  Age: 56 Year
  Sex: Female
  Weight: 84.82 kg

DRUGS (4)
  1. REVLIMID (LENALIDOMIDE) (15 MILLGIRAM, CAPSULES) [Suspect]
     Indication: PLASMA CELL MYELOMA
     Route: 048
     Dates: start: 20121019
  2. METOPROLOL [Concomitant]
  3. ACYCLOVIR [Concomitant]
  4. ASA (ACETYLESALICYLIC ACID) [Concomitant]

REACTIONS (3)
  - Pneumonia [None]
  - Bronchitis [None]
  - Platelet count decreased [None]
